FAERS Safety Report 6003344-5 (Version None)
Quarter: 2008Q4

REPORT INFORMATION
  Report Type: 
  Country: None (occurrence: None)
  Receive Date: 20081216
  Receipt Date: 20081209
  Transmission Date: 20090506
  Serious: Yes (Disabling)
  Sender: FDA-Public Use
  Company Number: US-AVENTIS-200718350US

PATIENT
  Sex: Female
  Weight: 141.8 kg

DRUGS (7)
  1. LOVENOX [Suspect]
     Dosage: DOSE: UNK
     Dates: start: 20070517, end: 20070610
  2. VICODIN [Concomitant]
     Dosage: DOSE: 5/500
     Dates: start: 20080125
  3. TRAMADOL HCL [Concomitant]
     Dates: start: 20070516
  4. GABAPENTIN [Concomitant]
     Dates: start: 20070516
  5. COUMADIN [Concomitant]
     Dates: start: 20070516
  6. BENICAR [Concomitant]
     Indication: BLOOD PRESSURE
     Dates: start: 20070516
  7. ACTOS [Concomitant]
     Dates: start: 20070516

REACTIONS (4)
  - CONTUSION [None]
  - DRUG INEFFECTIVE [None]
  - MASS [None]
  - NEURALGIA [None]
